FAERS Safety Report 6602176-4 (Version None)
Quarter: 2010Q1

REPORT INFORMATION
  Report Type: 
  Country: None (occurrence: None)
  Receive Date: 20100218
  Receipt Date: 20091214
  Transmission Date: 20100710
  Serious: No
  Sender: FDA-Public Use
  Company Number: #C-09-009

PATIENT
  Sex: Female

DRUGS (1)
  1. ULTRA STRENGTH PAIN RELIEVING RUB (CREAM) [Suspect]
     Indication: ANALGESIC THERAPY
     Dosage: TOPICAL ANALGESIC
     Route: 061

REACTIONS (4)
  - APPLICATION SITE BURN [None]
  - APPLICATION SITE RASH [None]
  - APPLICATION SITE VESICLES [None]
  - RASH MACULAR [None]
